FAERS Safety Report 8473113-5 (Version None)
Quarter: 2012Q2

REPORT INFORMATION
  Report Type: 
  Country: None (occurrence: None)
  Receive Date: 20120627
  Receipt Date: 20120622
  Transmission Date: 20120825
  Serious: Yes (Hospitalization)
  Sender: FDA-Public Use
  Company Number: US-GILEAD-2012-0055545

PATIENT
  Sex: Female

DRUGS (2)
  1. LETAIRIS [Suspect]
     Indication: PULMONARY HYPERTENSION
     Dosage: 10 MG, UNK
     Route: 048
     Dates: start: 20080512
  2. LETAIRIS [Suspect]
     Indication: SCLERODERMA

REACTIONS (3)
  - GAIT DISTURBANCE [None]
  - BIOPSY KIDNEY [None]
  - PROTEIN URINE PRESENT [None]
